FAERS Safety Report 9409302 (Version 1)
Quarter: 2013Q3

REPORT INFORMATION
  Report Type: Spontaneous
  Country: US (occurrence: US)
  Receive Date: 20130719
  Receipt Date: 20130719
  Transmission Date: 20140515
  Serious: No
  Sender: FDA-Public Use
  Company Number: US-PFIZER INC-2013210863

PATIENT
  Sex: 0

DRUGS (1)
  1. DEPO-MEDROL [Suspect]
     Indication: SPINAL COLUMN STENOSIS
     Dosage: FROM 40MG TO 80MG
     Route: 008

REACTIONS (2)
  - Off label use [Unknown]
  - Anxiety [Recovered/Resolved]
